FAERS Safety Report 5888223-6 (Version None)
Quarter: 2008Q3

REPORT INFORMATION
  Report Type: 
  Country: None (occurrence: None)
  Receive Date: 20080918
  Receipt Date: 20080825
  Transmission Date: 20090109
  Serious: No
  Sender: FDA-Public Use
  Company Number: JP-JNJFOC-20080805031

PATIENT

DRUGS (3)
  1. RISPERDAL [Suspect]
     Indication: DRUG USE FOR UNKNOWN INDICATION
     Route: 065
  2. AMLODIPINE BESYLATE [Concomitant]
     Route: 065
  3. BLOOD PRESSURE DRUG [Concomitant]
     Route: 065

REACTIONS (1)
  - ANAEMIA [None]
